FAERS Safety Report 6531727-3 (Version None)
Quarter: 2010Q1

REPORT INFORMATION
  Report Type: 
  Country: None (occurrence: None)
  Receive Date: 20100108
  Receipt Date: 20100105
  Transmission Date: 20100710
  Serious: Yes (Death)
  Sender: FDA-Public Use
  Company Number: JP-EISAI INC.-E2020-05804-CLI-JP

PATIENT
  Sex: Male
  Weight: 52 kg

DRUGS (7)
  1. ARICEPT [Suspect]
     Indication: DEMENTIA WITH LEWY BODIES
     Route: 048
     Dates: start: 20090421, end: 20091210
  2. ARICEPT FG [Suspect]
     Indication: DEMENTIA WITH LEWY BODIES
     Route: 048
     Dates: start: 20091211, end: 20091222
  3. ARICEPT [Suspect]
     Indication: DEMENTIA WITH LEWY BODIES
     Route: 048
     Dates: start: 20091223, end: 20091227
  4. ABILIFY [Suspect]
     Indication: DEMENTIA WITH LEWY BODIES
     Route: 048
     Dates: start: 20091223, end: 20091227
  5. WARFARIN SODIUM [Suspect]
     Route: 048
     Dates: start: 20091027, end: 20091227
  6. MAGLAX [Suspect]
     Route: 048
     Dates: end: 20091227
  7. TOWARAT L [Suspect]
     Route: 048
     Dates: start: 20091014, end: 20091227

REACTIONS (2)
  - ASPHYXIA [None]
  - SUBARACHNOID HAEMORRHAGE [None]
